FAERS Safety Report 19132295 (Version 1)
Quarter: 2021Q2

REPORT INFORMATION
  Report Type: Spontaneous
  Country: GB (occurrence: GB)
  Receive Date: 20210413
  Receipt Date: 20210413
  Transmission Date: 20210717
  Serious: Yes (Other)
  Sender: FDA-Public Use
  Company Number: GB-TEVA-2021-GB-1899569

PATIENT
  Age: 41 Year
  Sex: Female
  Weight: 68.03 kg

DRUGS (2)
  1. DESICCATED PORCINE THYROID GLAND [Concomitant]
  2. TRIMETHOPRIM. [Suspect]
     Active Substance: TRIMETHOPRIM
     Indication: URINARY TRACT INFECTION
     Dosage: 400 MILLIGRAM DAILY; 200 MG
     Route: 048
     Dates: start: 20210323, end: 20210327

REACTIONS (3)
  - Swollen tongue [Unknown]
  - Pharyngeal swelling [Unknown]
  - Pruritus [Unknown]
